FAERS Safety Report 11065986 (Version 2)
Quarter: 2015Q2

REPORT INFORMATION
  Report Type: Spontaneous
  Country: US (occurrence: US)
  Receive Date: 20150425
  Receipt Date: 20150525
  Transmission Date: 20150821
  Serious: No
  Sender: FDA-Public Use
  Company Number: US-JNJFOC-20130713712

PATIENT
  Age: 56 Year
  Sex: Male
  Weight: 88.45 kg

DRUGS (1)
  1. SIMPONI [Suspect]
     Active Substance: GOLIMUMAB
     Indication: SARCOIDOSIS
     Route: 058
     Dates: start: 20130720

REACTIONS (3)
  - Underdose [Recovered/Resolved]
  - Device malfunction [Unknown]
  - Fear [Recovered/Resolved]

NARRATIVE: CASE EVENT DATE: 20130720
